FAERS Safety Report 9277113 (Version 4)
Quarter: 2013Q4

REPORT INFORMATION
  Report Type: Spontaneous
  Country: US (occurrence: US)
  Receive Date: 20130507
  Receipt Date: 20131121
  Transmission Date: 20140711
  Serious: Yes (Other)
  Sender: FDA-Public Use
  Company Number: US-BRISTOL-MYERS SQUIBB COMPANY-18845610

PATIENT
  Age: 72 Year
  Sex: Female
  Weight: 103.4 kg

DRUGS (14)
  1. BYETTA [Suspect]
     Indication: TYPE 2 DIABETES MELLITUS
     Dosage: 06JAN07-17SEP07:10MCG?01DEC06-31DEC06:5MCG?09JUN08-30MAY10:10MCG
     Dates: start: 20061201, end: 20100530
  2. METFORMIN [Concomitant]
  3. GLUCOTROL [Concomitant]
  4. LANTUS [Concomitant]
  5. ACTOS [Concomitant]
  6. AMLODIPINE [Concomitant]
  7. CLONIDINE [Concomitant]
  8. DIOVAN [Concomitant]
  9. PRAVASTATIN SODIUM [Concomitant]
  10. XYLOCAINE [Concomitant]
  11. ALEVE [Concomitant]
     Route: 048
  12. CONVALLARIA MAJALIS\CRATAEGUS LAEVIGATA LEAF\PROXYPHYLLINE [Concomitant]
     Route: 048
  13. VITAMIN D [Concomitant]
     Route: 048
  14. MULTIVITAMIN [Concomitant]
     Route: 048

REACTIONS (1)
  - Pancreatic carcinoma [Unknown]
